FAERS Safety Report 4296544-6 (Version None)
Quarter: 2004Q1

REPORT INFORMATION
  Report Type: 
  Country: None (occurrence: None)
  Receive Date: 20040126
  Receipt Date: 20030923
  Transmission Date: 20041129
  Serious: No
  Sender: FDA-Public Use
  Company Number: USA030844760

PATIENT
  Sex: Female

DRUGS (4)
  1. STRATTERA [Suspect]
     Dosage: 15 MG
  2. PAXIL [Concomitant]
  3. ADDERALL 10 [Concomitant]
  4. MULTIVITAMIN [Concomitant]

REACTIONS (5)
  - ALOPECIA [None]
  - CHILLS [None]
  - FATIGUE [None]
  - FEELING ABNORMAL [None]
  - PYREXIA [None]
